FAERS Safety Report 16929893 (Version 2)
Quarter: 2019Q4

REPORT INFORMATION
  Report Type: Report from Study
  Country: US (occurrence: US)
  Receive Date: 20191017
  Receipt Date: 20191101
  Transmission Date: 20200122
  Serious: Yes (Death, Other)
  Sender: FDA-Public Use
  Company Number: US-BAYER-2019-146575

PATIENT
  Age: 71 Year
  Sex: Male
  Weight: 49.43 kg

DRUGS (25)
  1. ALEVE [Concomitant]
     Active Substance: NAPROXEN SODIUM
     Dosage: UNK
  2. MILK OF MAGNESIA [Concomitant]
     Active Substance: MAGNESIUM HYDROXIDE
     Dosage: UNK
  3. SHINGRIX [Concomitant]
     Active Substance: RECOMBINANT VARICELLA ZOSTER VIRUS (VZV) GLYCOPROTEIN E
     Dosage: UNK
  4. DEXAMETHASONE. [Concomitant]
     Active Substance: DEXAMETHASONE
     Dosage: UNK
  5. OXYCODONE [Concomitant]
     Active Substance: OXYCODONE
     Dosage: UNK (1 TO 2 TABLETS AND ADMITS TO TAKING 3)
  6. VITAMIN B12 [Concomitant]
     Active Substance: CYANOCOBALAMIN
     Dosage: 2500 MC
  7. OMEPRAZOLE. [Concomitant]
     Active Substance: OMEPRAZOLE
     Dosage: DAILY DOSE 40 MG
  8. FINASTERIDE. [Concomitant]
     Active Substance: FINASTERIDE
     Dosage: DAILY DOSE 5 MG
  9. ACETAMINOPHEN;CODEINE [Concomitant]
     Active Substance: ACETAMINOPHEN\CODEINE PHOSPHATE
     Dosage: UNK
  10. CARAFATE [Concomitant]
     Active Substance: SUCRALFATE
     Dosage: UNK
  11. OXYCODONE HYDROCHLORIDE. [Concomitant]
     Active Substance: OXYCODONE HYDROCHLORIDE
  12. STIVARGA [Suspect]
     Active Substance: REGORAFENIB
     Indication: METASTASES TO LYMPH NODES
     Dosage: 160 MG (FOR 21 DAYS)
     Route: 048
     Dates: start: 2019
  13. PROCHLORPERAZINE MALEATE. [Concomitant]
     Active Substance: PROCHLORPERAZINE MALEATE
     Dosage: DAILY DOSE 10 MG
  14. LACTULOSE. [Concomitant]
     Active Substance: LACTULOSE
     Dosage: UNK
  15. KRISTALOSE [Concomitant]
     Active Substance: LACTULOSE
     Dosage: UNK
  16. SUCRALFATE. [Concomitant]
     Active Substance: SUCRALFATE
     Dosage: DAILY DOSE 1 G
  17. DRONABINOL. [Concomitant]
     Active Substance: DRONABINOL
     Dosage: DAILY DOSE 5 MG
  18. ONDANSETRON ODT DRLA [Concomitant]
     Active Substance: ONDANSETRON
     Dosage: DAILY DOSE 8 MG
  19. ONDANSETRON [Concomitant]
     Active Substance: ONDANSETRON
     Dosage: UNK
  20. STIVARGA [Suspect]
     Active Substance: REGORAFENIB
     Indication: COLON CANCER
     Dosage: 160 MG, QD (21 DAYS ON,7 DAYS OFF)
     Route: 048
     Dates: start: 20190701, end: 2019
  21. STIVARGA [Suspect]
     Active Substance: REGORAFENIB
     Indication: OESOPHAGEAL CARCINOMA
     Dosage: UNK
     Route: 048
     Dates: start: 20191005, end: 2019
  22. PREGABALIN. [Concomitant]
     Active Substance: PREGABALIN
     Dosage: UNK
  23. PROCHLORPERAZINE. [Concomitant]
     Active Substance: PROCHLORPERAZINE
     Dosage: UNK
  24. TAMSULOSIN HCL [Concomitant]
     Active Substance: TAMSULOSIN HYDROCHLORIDE
     Dosage: DAILY DOSE .4 MG
  25. FENTANYL. [Concomitant]
     Active Substance: FENTANYL
     Dosage: UNK

REACTIONS (9)
  - Death [Fatal]
  - Abdominal pain upper [None]
  - Weight decreased [None]
  - Insomnia [None]
  - Brain oedema [None]
  - Malaise [Not Recovered/Not Resolved]
  - Back pain [Unknown]
  - Central nervous system lesion [None]
  - Constipation [None]

NARRATIVE: CASE EVENT DATE: 20190930
